FAERS Safety Report 14010220 (Version 3)
Quarter: 2018Q3

REPORT INFORMATION
  Report Type: Report from Study
  Country: US (occurrence: US)
  Receive Date: 20170926
  Receipt Date: 20180917
  Transmission Date: 20181010
  Serious: Yes (Hospitalization)
  Sender: FDA-Public Use
  Company Number: US-SUN PHARMACEUTICAL INDUSTRIES LTD-2017US-150527

PATIENT
  Age: 66 Year
  Sex: Male
  Weight: 99.7 kg

DRUGS (11)
  1. OXYCODONE [Concomitant]
     Active Substance: OXYCODONE
     Indication: PRODUCT USED FOR UNKNOWN INDICATION
  2. SONIDEGIB [Suspect]
     Active Substance: SONIDEGIB
     Indication: ACUTE MYELOID LEUKAEMIA
     Dosage: 200 MG, QD (DAY 1?28 EACH CYCLE
     Route: 048
     Dates: start: 20150309, end: 20150316
  3. AZACITIDINE COMP?AZAC+ [Suspect]
     Active Substance: AZACITIDINE
     Indication: ACUTE MYELOID LEUKAEMIA
     Dosage: 75 MG, (DAYS 1?5 / CYCLE)
     Route: 058
     Dates: start: 20150309, end: 20150316
  4. LOVAZA [Concomitant]
     Active Substance: OMEGA-3-ACID ETHYL ESTERS
     Indication: PRODUCT USED FOR UNKNOWN INDICATION
     Dosage: UNK
     Route: 065
  5. JANUVIA [Concomitant]
     Active Substance: SITAGLIPTIN PHOSPHATE
     Indication: PRODUCT USED FOR UNKNOWN INDICATION
     Dosage: UNK
     Route: 065
  6. MAGNESIUM [Concomitant]
     Active Substance: MAGNESIUM
     Indication: PRODUCT USED FOR UNKNOWN INDICATION
     Dosage: UNK
     Route: 065
  7. MULTIVITAMINS [Concomitant]
     Active Substance: VITAMINS
     Indication: PRODUCT USED FOR UNKNOWN INDICATION
  8. AMLODIPINE [Concomitant]
     Active Substance: AMLODIPINE BESYLATE
     Indication: PRODUCT USED FOR UNKNOWN INDICATION
     Dosage: UNK
     Route: 065
  9. AZACITIDINE COMP?AZAC+ [Suspect]
     Active Substance: AZACITIDINE
     Dosage: 75 MG, (DAYS 1?5 / CYCLE)
     Route: 058
     Dates: start: 20150402
  10. METOPROLOL. [Concomitant]
     Active Substance: METOPROLOL
     Indication: PRODUCT USED FOR UNKNOWN INDICATION
     Dosage: UNK
     Route: 065
  11. SONIDEGIB [Suspect]
     Active Substance: SONIDEGIB
     Dosage: 200 MG, QD (DAY 1?28 EACH CYCLE
     Route: 048
     Dates: start: 20150328

REACTIONS (3)
  - Hypotension [Recovered/Resolved]
  - Pancytopenia [Recovered/Resolved]
  - Atrial fibrillation [Recovered/Resolved]

NARRATIVE: CASE EVENT DATE: 20150313
